FAERS Safety Report 23365200 (Version 1)
Quarter: 2024Q1

REPORT INFORMATION
  Report Type: Spontaneous
  Country: US (occurrence: None)
  Receive Date: 20240104
  Receipt Date: 20240104
  Transmission Date: 20240410
  Serious: No
  Sender: FDA-Public Use
  Company Number: 2023A294630

PATIENT
  Sex: Female

DRUGS (1)
  1. SYMBICORT [Suspect]
     Active Substance: BUDESONIDE\FORMOTEROL FUMARATE DIHYDRATE
     Indication: Chronic obstructive pulmonary disease
     Dosage: 160,UNKNOWN UNKNOWN
     Route: 055

REACTIONS (4)
  - Stomatitis [Unknown]
  - Device leakage [Unknown]
  - Device use issue [Unknown]
  - Wrong technique in device usage process [Unknown]
